FAERS Safety Report 9900271 (Version 1)
Quarter: 2014Q1

REPORT INFORMATION
  Report Type: Spontaneous
  Country: US (occurrence: US)
  Receive Date: 20140215
  Receipt Date: 20140215
  Transmission Date: 20141002
  Serious: Yes (Other)
  Sender: FDA-Public Use
  Company Number: US-ASTRAZENECA-2014SE09251

PATIENT
  Age: 54 Year
  Sex: Female
  Weight: 77.1 kg

DRUGS (6)
  1. LISINOPRIL [Suspect]
     Indication: HYPERTENSION
     Route: 048
     Dates: start: 2013, end: 2013
  2. XANAX [Concomitant]
     Indication: ANXIETY
     Dosage: UNKNOWN
  3. LOSARTEN [Concomitant]
     Indication: BLOOD PRESSURE ABNORMAL
     Dosage: UNKNOWN
  4. XGEVA [Concomitant]
     Indication: BONE CANCER
     Dosage: MONTHLY
  5. STOOL SOFTENER [Concomitant]
     Indication: CONSTIPATION
     Dosage: UNKNOWN
  6. FASLODEX [Suspect]
     Indication: BREAST CANCER
     Dosage: MONTHLY
     Route: 030
     Dates: start: 2013, end: 201310

REACTIONS (15)
  - Metastasis [Unknown]
  - Hypertension [Unknown]
  - Vocal cord disorder [Unknown]
  - Weight increased [Not Recovered/Not Resolved]
  - Constipation [Unknown]
  - Delirium [Unknown]
  - Facial paresis [Unknown]
  - Malaise [Not Recovered/Not Resolved]
  - Hypotonia [Not Recovered/Not Resolved]
  - Adverse event [Unknown]
  - Dyspnoea [Unknown]
  - Cerebrovascular accident [Unknown]
  - Palpitations [Unknown]
  - Cough [Unknown]
  - Vomiting [Recovered/Resolved]
